FAERS Safety Report 15427045 (Version 1)
Quarter: 2018Q3

REPORT INFORMATION
  Report Type: Spontaneous
  Country: US (occurrence: US)
  Receive Date: 20180925
  Receipt Date: 20180925
  Transmission Date: 20181010
  Serious: No
  Sender: FDA-Public Use
  Company Number: US-INDIVIOR LIMITED-INDV-109399-2018

PATIENT
  Sex: Male

DRUGS (2)
  1. METHADONE [Suspect]
     Active Substance: METHADONE HYDROCHLORIDE
     Indication: PRODUCT USED FOR UNKNOWN INDICATION
     Dosage: UNKNOWN
     Route: 065
  2. SUBOXONE [Suspect]
     Active Substance: BUPRENORPHINE HYDROCHLORIDE\NALOXONE HYDROCHLORIDE
     Indication: DRUG DEPENDENCE
     Dosage: 2 FILMS PER DAY, 24MG
     Route: 060
     Dates: start: 201604, end: 201802

REACTIONS (13)
  - Decreased appetite [Unknown]
  - Nausea [Unknown]
  - Insomnia [Unknown]
  - Depression [Unknown]
  - Drug abuse [Unknown]
  - Drug withdrawal syndrome [Not Recovered/Not Resolved]
  - Hypersensitivity [Unknown]
  - Feeling abnormal [Unknown]
  - Blood pressure increased [Unknown]
  - Therapy cessation [Recovered/Resolved]
  - Libido decreased [Unknown]
  - Tremor [Unknown]
  - Drug dependence [Unknown]

NARRATIVE: CASE EVENT DATE: 201802
